FAERS Safety Report 24075876 (Version 1)
Quarter: 2024Q3

REPORT INFORMATION
  Report Type: Spontaneous
  Country: US (occurrence: US)
  Receive Date: 20240710
  Receipt Date: 20240710
  Transmission Date: 20241016
  Serious: Yes (Hospitalization, Other)
  Sender: PURDUE
  Company Number: US-PURDUE PHARMA-USA-2024-0308161

PATIENT
  Age: 66 Year
  Sex: Female

DRUGS (2)
  1. OXYCODONE HYDROCHLORIDE [Suspect]
     Active Substance: OXYCODONE HYDROCHLORIDE
     Indication: Pain
     Dosage: 10 MILLIGRAM
     Route: 065
  2. MORPHINE SULFATE [Suspect]
     Active Substance: MORPHINE SULFATE
     Indication: Pain
     Dosage: 15 MILLIGRAM
     Route: 065

REACTIONS (5)
  - Mental status changes [Recovered/Resolved]
  - Hypoxia [Recovered/Resolved]
  - Lethargy [Recovered/Resolved]
  - Overdose [Recovered/Resolved]
  - Blood pressure decreased [Recovered/Resolved]
